FAERS Safety Report 5290934-0 (Version None)
Quarter: 2007Q2

REPORT INFORMATION
  Report Type: 
  Country: None (occurrence: None)
  Receive Date: 20070405
  Receipt Date: 20070405
  Transmission Date: 20071010
  Serious: No
  Sender: FDA-Public Use
  Company Number: None

PATIENT

DRUGS (2)
  1. GEMCITABINE HCL [Suspect]
     Dosage: 1600MILIGRAMS -1000 MG/M2
  2. VINORELBINE [Suspect]
     Dosage: 40 MILLIGRAMS  -25MG/M2-

REACTIONS (2)
  - FLUID RETENTION [None]
  - PERICARDIAL EFFUSION [None]
